FAERS Safety Report 8035142-5 (Version None)
Quarter: 2012Q1

REPORT INFORMATION
  Report Type: 
  Country: None (occurrence: None)
  Receive Date: 20120111
  Receipt Date: 20120104
  Transmission Date: 20120608
  Serious: No
  Sender: FDA-Public Use
  Company Number: US-BIOGENIDEC-2011BI045990

PATIENT
  Age: 31 Year
  Sex: Male

DRUGS (7)
  1. ADVAIR DISKUS 100/50 [Concomitant]
  2. LEVOCETIRIZINE DIHYDROCHLORIDE [Concomitant]
     Route: 048
  3. AMPYRA [Concomitant]
     Route: 048
     Dates: start: 20101102
  4. TYSABRI [Suspect]
     Route: 042
     Dates: start: 20111201
  5. DETROL LA [Concomitant]
     Route: 048
     Dates: start: 20110513
  6. TYSABRI [Suspect]
     Indication: MULTIPLE SCLEROSIS
     Route: 042
     Dates: start: 20110615, end: 20111108
  7. IBUPROFEN [Concomitant]
     Route: 048

REACTIONS (1)
  - MULTIPLE SCLEROSIS [None]
